FAERS Safety Report 5526780-X (Version None)
Quarter: 2007Q4

REPORT INFORMATION
  Report Type: 
  Country: None (occurrence: None)
  Receive Date: 20071127
  Receipt Date: 20071115
  Transmission Date: 20080405
  Serious: Yes (Life-Threatening, Hospitalization, Other)
  Sender: FDA-Public Use
  Company Number: DE-ROCHE-532166

PATIENT
  Age: 25 Year
  Sex: Male
  Weight: 56 kg

DRUGS (5)
  1. PEGASYS [Suspect]
     Dosage: DOSE: 135 MCG PER WEEK. DOSE INCREASED
     Route: 065
     Dates: start: 20070904
  2. PEGASYS [Suspect]
     Dosage: DOSE 180 MCG PER WEEK. DOSE DECREASED
     Route: 065
     Dates: end: 20071019
  3. PEGASYS [Suspect]
     Dosage: DOSE 135 MCG
     Route: 065
     Dates: start: 20071029, end: 20071108
  4. RIBAVIRIN [Suspect]
     Dosage: DOSE: 400 MG PER WEEK
     Route: 065
  5. CIPRO [Concomitant]
     Dates: start: 20071029, end: 20071107

REACTIONS (2)
  - RESPIRATORY DISORDER [None]
  - VIRAL MYOCARDITIS [None]
